FAERS Safety Report 9387892 (Version 2)
Quarter: 2013Q3

REPORT INFORMATION
  Report Type: Report from Study
  Country: US (occurrence: US)
  Receive Date: 20130708
  Receipt Date: 20130725
  Transmission Date: 20140515
  Serious: No
  Sender: FDA-Public Use
  Company Number: US-VERTEX PHARMACEUTICALS INC-2013-007728

PATIENT
  Sex: Male

DRUGS (8)
  1. VX-950 (TELAPREVIR) [Suspect]
     Indication: HEPATITIS C
     Dosage: 750 MG, TID
     Route: 048
     Dates: start: 20130524
  2. PEGINTRON [Suspect]
     Indication: HEPATITIS C
     Dosage: 150 ?G, QW
     Route: 058
     Dates: start: 20130524
  3. RIBAVIRIN [Suspect]
     Indication: HEPATITIS C
     Dosage: 1200 MG, QD
     Dates: start: 20130524
  4. RIBAVIRIN [Suspect]
     Dosage: 600 MG, QD
     Dates: start: 20130624
  5. VICODIN [Concomitant]
  6. FISH OIL [Concomitant]
  7. VITAMIN B [Concomitant]
  8. MULTIVITAMIN [Concomitant]

REACTIONS (1)
  - Fatigue [Not Recovered/Not Resolved]
